FAERS Safety Report 5645015-0 (Version None)
Quarter: 2008Q1

REPORT INFORMATION
  Report Type: 
  Country: None (occurrence: None)
  Receive Date: 20080229
  Receipt Date: 20080221
  Transmission Date: 20080703
  Serious: Yes (Other)
  Sender: FDA-Public Use
  Company Number: US-ELI_LILLY_AND_COMPANY-US200802001556

PATIENT
  Sex: Female

DRUGS (6)
  1. BYETTA [Suspect]
     Dosage: 5 UG, 2/D
     Route: 058
     Dates: start: 20071201
  2. BYETTA [Suspect]
     Dosage: 10 UG, 2/D
     Route: 058
     Dates: end: 20080127
  3. AVANDAMET [Concomitant]
     Indication: DIABETES MELLITUS
     Dosage: UNK, 2/D
     Route: 048
     Dates: start: 20070101
  4. CRESTOR [Concomitant]
     Indication: HYPERCHOLESTEROLAEMIA
     Dosage: 10 MG, UNKNOWN
     Route: 048
     Dates: start: 20060101
  5. TAPAZOLE [Concomitant]
     Indication: HYPERTHYROIDISM
     Dosage: 10 MG, UNKNOWN
     Route: 048
     Dates: start: 20070101
  6. ADVAIR DISKUS 100/50 [Concomitant]
     Indication: ASTHMA
     Dosage: UNK, UNKNOWN
     Dates: start: 20030101

REACTIONS (8)
  - ANAPHYLACTIC REACTION [None]
  - BODY TEMPERATURE DECREASED [None]
  - LOSS OF CONSCIOUSNESS [None]
  - MALAISE [None]
  - MUSCULAR WEAKNESS [None]
  - OXYGEN SATURATION DECREASED [None]
  - SOMNOLENCE [None]
  - URTICARIA [None]
